FAERS Safety Report 8618589-5 (Version None)
Quarter: 2012Q3

REPORT INFORMATION
  Report Type: 
  Country: None (occurrence: None)
  Receive Date: 20120824
  Receipt Date: 20120821
  Transmission Date: 20120928
  Serious: No
  Sender: FDA-Public Use
  Company Number: US-PFIZER INC-2012140432

PATIENT
  Age: 42 Year
  Sex: Female
  Weight: 86.168 kg

DRUGS (3)
  1. EFFEXOR XR [Suspect]
     Indication: DEPRESSION
     Dosage: 150 MG, 2X/DAY
     Route: 048
  2. REBIF [Concomitant]
     Dosage: UNK, 3X/WEEK
  3. FERROUS SULFATE [Concomitant]
     Dosage: UNK

REACTIONS (2)
  - EAR INFECTION [None]
  - LARYNGITIS [None]
